FAERS Safety Report 21049538 (Version 1)
Quarter: 2022Q3

REPORT INFORMATION
  Report Type: Spontaneous
  Country: PR (occurrence: None)
  Receive Date: 20220706
  Receipt Date: 20220706
  Transmission Date: 20221026
  Serious: Yes (Other)
  Sender: FDA-Public Use
  Company Number: None

PATIENT
  Age: 58 Year
  Sex: Female
  Weight: 69.3 kg

DRUGS (2)
  1. ORENCIA [Suspect]
     Active Substance: ABATACEPT
     Indication: Rheumatoid arthritis
     Dosage: OTHER FREQUENCY : WEEKLY;?
     Route: 058
  2. METHOTREXATE [Concomitant]
     Active Substance: METHOTREXATE

REACTIONS (9)
  - Headache [None]
  - Diarrhoea [None]
  - Dyspepsia [None]
  - Back pain [None]
  - Rash [None]
  - Weight increased [None]
  - Drug ineffective [None]
  - Rheumatoid factor increased [None]
  - Red blood cell sedimentation rate increased [None]

NARRATIVE: CASE EVENT DATE: 20220606
